FAERS Safety Report 25099297 (Version 1)
Quarter: 2025Q1

REPORT INFORMATION
  Report Type: Spontaneous
  Country: US (occurrence: US)
  Receive Date: 20250320
  Receipt Date: 20250320
  Transmission Date: 20250409
  Serious: Yes (Hospitalization, Other)
  Sender: NOVO NORDISK
  Company Number: US-NOVOPROD-1390405

PATIENT
  Sex: Male

DRUGS (2)
  1. INSULIN DEGLUDEC [Suspect]
     Active Substance: INSULIN DEGLUDEC
     Indication: Gestational diabetes
  2. INSULIN ASPART [Suspect]
     Active Substance: INSULIN ASPART
     Indication: Gestational diabetes

REACTIONS (6)
  - Hypoglycaemia neonatal [Recovered/Resolved]
  - Respiratory distress [Recovered/Resolved]
  - Atrial septal defect [Unknown]
  - Foetal macrosomia [Unknown]
  - Premature baby [Recovered/Resolved]
  - Foetal exposure during pregnancy [Recovered/Resolved]
